FAERS Safety Report 9969713 (Version 3)
Quarter: 2014Q1

REPORT INFORMATION
  Report Type: Spontaneous
  Country: AU (occurrence: AU)
  Receive Date: 20140306
  Receipt Date: 20140325
  Transmission Date: 20141002
  Serious: Yes (Other)
  Sender: FDA-Public Use
  Company Number: AU-SHIRE-ALL1-2014-01046

PATIENT
  Sex: 0

DRUGS (3)
  1. VYVANSE [Suspect]
     Indication: ATTENTION DEFICIT/HYPERACTIVITY DISORDER
     Dosage: 30 MG, 1X/DAY:QD
     Route: 048
     Dates: start: 20140128, end: 201402
  2. VYVANSE [Suspect]
     Dosage: UNK, UNKNOWN-1/2 DOSE (15MG) VYVANSE
     Dates: start: 2014, end: 2014
  3. VYVANSE [Suspect]
     Dosage: UNK, UNKNOWN-1/2 DOSE (15MG) VYVANSE
     Dates: start: 20140301

REACTIONS (2)
  - Flatulence [Not Recovered/Not Resolved]
  - Incorrect dose administered [Not Recovered/Not Resolved]
